FAERS Safety Report 15200850 (Version 1)
Quarter: 2018Q3

REPORT INFORMATION
  Report Type: Spontaneous
  Country: GB (occurrence: GB)
  Receive Date: 20180726
  Receipt Date: 20180726
  Transmission Date: 20181010
  Serious: Yes (Other)
  Sender: FDA-Public Use
  Company Number: GB-AUROBINDO-AUR-APL-2018-037220

PATIENT
  Age: 93 Year
  Sex: Female

DRUGS (1)
  1. CO?AMOXICLAV [Suspect]
     Active Substance: AMOXICILLIN\CLAVULANATE POTASSIUM
     Indication: LOWER RESPIRATORY TRACT INFECTION
     Dosage: 3.6 GRAM, ONCE A DAY
     Route: 042
     Dates: start: 20180701, end: 20180702

REACTIONS (4)
  - Rash macular [Not Recovered/Not Resolved]
  - Skin lesion [Not Recovered/Not Resolved]
  - Pruritus [Unknown]
  - Scab [Not Recovered/Not Resolved]

NARRATIVE: CASE EVENT DATE: 20180701
